FAERS Safety Report 7278753-7 (Version None)
Quarter: 2011Q1

REPORT INFORMATION
  Report Type: 
  Country: None (occurrence: None)
  Receive Date: 20110207
  Receipt Date: 20110128
  Transmission Date: 20110831
  Serious: Yes (Hospitalization, Other)
  Sender: FDA-Public Use
  Company Number: JP-MPIJNJ-2007_02252

PATIENT

DRUGS (7)
  1. ALFAROL [Concomitant]
     Dosage: 1.00 UG, UNK
     Route: 048
     Dates: start: 20040101
  2. VELCADE [Suspect]
     Dosage: 1.70 MG, UNK
     Route: 042
     Dates: start: 20070716, end: 20070726
  3. DEXAMETHASONE [Concomitant]
     Indication: MULTIPLE MYELOMA
     Dosage: 16.00 MG, UNK
     Route: 042
     Dates: start: 20070604, end: 20070614
  4. VELCADE [Suspect]
     Indication: MULTIPLE MYELOMA
     Dosage: 2.00 MG, UNK
     Route: 042
     Dates: start: 20070604, end: 20070614
  5. GASTER OD [Concomitant]
     Indication: REFLUX OESOPHAGITIS
     Dosage: 20 MG, UNK
     Route: 048
     Dates: start: 20060101
  6. PREDONINE [Concomitant]
     Indication: MULTIPLE MYELOMA
     Dosage: 35 MG, UNK
     Route: 048
     Dates: start: 20080705, end: 20080725
  7. PLATELETS [Concomitant]
     Dosage: 10 IU, UNK
     Route: 042
     Dates: start: 20070618, end: 20070618

REACTIONS (3)
  - PAROTITIS [None]
  - WHITE BLOOD CELL COUNT DECREASED [None]
  - PLATELET COUNT DECREASED [None]
